FAERS Safety Report 4788444-X (Version None)
Quarter: 2005Q4

REPORT INFORMATION
  Report Type: 
  Country: None (occurrence: None)
  Receive Date: 20051005
  Receipt Date: 20050914
  Transmission Date: 20060501
  Serious: Yes (Other)
  Sender: FDA-Public Use
  Company Number: PHBS2005JP13557

PATIENT
  Age: 63 Year
  Sex: Female

DRUGS (5)
  1. GLEEVEC [Suspect]
     Indication: ACUTE LYMPHOCYTIC LEUKAEMIA
     Dates: start: 20040421
  2. 6-MP [Suspect]
     Dates: start: 20040421
  3. VP-16 [Suspect]
  4. ARA-C [Suspect]
  5. AMLODIPINE BESYLATE [Concomitant]

REACTIONS (11)
  - BLOOD CULTURE POSITIVE [None]
  - CANDIDA SEPSIS [None]
  - FEBRILE NEUTROPENIA [None]
  - HEPATOMEGALY [None]
  - HEPATOSPLENIC CANDIDIASIS [None]
  - LIVER ABSCESS [None]
  - ORAL PAIN [None]
  - POST PROCEDURAL DIARRHOEA [None]
  - PYREXIA [None]
  - SPLENIC ABSCESS [None]
  - STOMATITIS [None]
